FAERS Safety Report 15616614 (Version 1)
Quarter: 2018Q4

REPORT INFORMATION
  Report Type: Spontaneous
  Country: US (occurrence: US)
  Receive Date: 20181114
  Receipt Date: 20181114
  Transmission Date: 20190205
  Serious: No
  Sender: FDA-Public Use
  Company Number: US-ASTRAZENECA-2018SF36333

PATIENT

DRUGS (2)
  1. CRESTOR [Suspect]
     Active Substance: ROSUVASTATIN CALCIUM
     Indication: BLOOD CHOLESTEROL INCREASED
     Route: 048
  2. CHOLESTEROL [Suspect]
     Active Substance: CHOLESTEROL
     Route: 065

REACTIONS (3)
  - Swelling face [Not Recovered/Not Resolved]
  - Allergy to chemicals [Recovering/Resolving]
  - Alopecia [Unknown]
